FAERS Safety Report 18103188 (Version 1)
Quarter: 2020Q3

REPORT INFORMATION
  Report Type: Spontaneous
  Country: PT (occurrence: PT)
  Receive Date: 20200803
  Receipt Date: 20200803
  Transmission Date: 20201103
  Serious: Yes (Other)
  Sender: FDA-Public Use
  Company Number: PT-PFIZER INC-2020286795

PATIENT
  Sex: Female

DRUGS (10)
  1. IMMUNOGLOBULIN HUMAN [Suspect]
     Active Substance: HUMAN IMMUNOGLOBULIN G
     Indication: POLYARTERITIS NODOSA
     Dosage: 2 KG, MONTHLY
  2. AZATHIOPRINE. [Suspect]
     Active Substance: AZATHIOPRINE
     Indication: POLYARTERITIS NODOSA
     Dosage: 2 MG/KG, DAILY
  3. PENTOXYPHYLLINE [Suspect]
     Active Substance: PENTOXIFYLLINE
     Indication: POLYARTERITIS NODOSA
     Dosage: UNK
  4. ILOPROST. [Suspect]
     Active Substance: ILOPROST
     Indication: POLYARTERITIS NODOSA
     Dosage: UNK
  5. MYCOPHENOLATE MOFETIL. [Suspect]
     Active Substance: MYCOPHENOLATE MOFETIL
     Indication: POLYARTERITIS NODOSA
     Dosage: UNK
  6. PREDNISOLONE. [Concomitant]
     Active Substance: PREDNISOLONE
     Indication: POLYARTERITIS NODOSA
     Dosage: 1 MG/KG, DAILY
  7. ASPIRIN [ACETYLSALICYLIC ACID] [Concomitant]
     Active Substance: ASPIRIN
     Indication: POLYARTERITIS NODOSA
     Dosage: 100 MG, DAILY (LOW?DOSE)
  8. METHOTREXATE SODIUM. [Suspect]
     Active Substance: METHOTREXATE SODIUM
     Indication: POLYARTERITIS NODOSA
     Dosage: 20 MG, WEEKLY
  9. CYCLOPHOSPHAMIDE. [Suspect]
     Active Substance: CYCLOPHOSPHAMIDE
     Dosage: UNK
  10. CYCLOPHOSPHAMIDE. [Suspect]
     Active Substance: CYCLOPHOSPHAMIDE
     Indication: POLYARTERITIS NODOSA
     Dosage: UNK (SEVERAL CYCLES)
     Route: 042

REACTIONS (4)
  - Ischaemic stroke [Unknown]
  - Drug ineffective [Recovered/Resolved]
  - Cauda equina syndrome [Unknown]
  - Extremity necrosis [Unknown]
